FAERS Safety Report 8065629-0 (Version None)
Quarter: 2012Q1

REPORT INFORMATION
  Report Type: 
  Country: None (occurrence: None)
  Receive Date: 20120124
  Receipt Date: 20120110
  Transmission Date: 20120608
  Serious: Yes (Hospitalization)
  Sender: FDA-Public Use
  Company Number: JP-UCBSA-044787

PATIENT
  Age: 53 Year
  Sex: Female

DRUGS (14)
  1. CERTOLIZUMAB PEGOL [Suspect]
     Indication: RHEUMATOID ARTHRITIS
     Route: 058
     Dates: start: 20110428, end: 20111013
  2. PREDNISOLONE [Concomitant]
     Dosage: 3 MG DAILY
     Dates: start: 20091209
  3. IMIDAPRIL HYDROCHLORIDE [Concomitant]
  4. TACROLIMUS [Concomitant]
     Dosage: 1.5 MG DAILY
     Dates: start: 20091130
  5. KETOPROFEN [Concomitant]
     Dosage: ADEQUATE DOSE AS NEEDED
     Dates: start: 20110120
  6. FERROUS CITRATE [Concomitant]
     Dosage: DAILY DOSE: 50 MG
     Dates: start: 20110120
  7. ALDIOXA [Concomitant]
     Dosage: AS NEEDED
     Dates: start: 20110707
  8. TACROLIMUS [Concomitant]
     Dosage: DAILY DOSE: 1.5 MG
     Dates: start: 20111115
  9. IMIDAPRIL HYDROCHLORIDE [Concomitant]
     Dosage: DAILY DOSE: 2.5 MG
     Dates: start: 20050101
  10. AMLODIPINE BESYLATE [Concomitant]
     Dates: start: 20050101
  11. INDAPAMIDE [Concomitant]
     Dosage: DAILY DOSE: 1 MG
     Dates: start: 20050101
  12. LOXOPROFEN SODIUM HYDRATE [Concomitant]
     Dosage: 180 MG DAILY
     Dates: start: 20091130
  13. ALPROSTADIL ALFADEX [Concomitant]
     Dosage: ADEQUATE DOSE AS NEEDED
     Dates: start: 20110915
  14. BETAMETHASONE SODIUM PHOSPHATE [Concomitant]
     Dosage: ADEQUATE DOSE AS NEEDED

REACTIONS (1)
  - INFECTIOUS PERITONITIS [None]
